FAERS Safety Report 16850512 (Version 1)
Quarter: 2019Q3

REPORT INFORMATION
  Report Type: Spontaneous
  Country: US (occurrence: US)
  Receive Date: 20190925
  Receipt Date: 20190925
  Transmission Date: 20191005
  Serious: No
  Sender: FDA-Public Use
  Company Number: US-UPSHER-SMITH LABORATORIES, LLC-2018USL00378

PATIENT
  Sex: Female
  Weight: 67.57 kg

DRUGS (1)
  1. BACLOFEN. [Suspect]
     Active Substance: BACLOFEN
     Indication: MULTIPLE SCLEROSIS
     Dosage: 50 MG, DIVIDED 4 TIMES DAILY
     Route: 048
     Dates: start: 2018, end: 2018

REACTIONS (6)
  - Drug ineffective [Recovered/Resolved]
  - Muscle spasms [Recovered/Resolved]
  - Muscle rigidity [Recovered/Resolved]
  - Unevaluable event [Recovered/Resolved]
  - Product substitution issue [Recovered/Resolved]
  - Gait disturbance [Recovered/Resolved]

NARRATIVE: CASE EVENT DATE: 2018
